FAERS Safety Report 6297776-8 (Version None)
Quarter: 2009Q3

REPORT INFORMATION
  Report Type: 
  Country: None (occurrence: None)
  Receive Date: 20090804
  Receipt Date: 20090804
  Transmission Date: 20100115
  Serious: Yes (Other)
  Sender: FDA-Public Use
  Company Number: None

PATIENT
  Age: 27 Year
  Sex: Female
  Weight: 44.4525 kg

DRUGS (7)
  1. TOPAMAX [Suspect]
     Indication: MIGRAINE
     Dosage: 25MG, TWICE DAILY, PO
     Route: 048
     Dates: start: 20090426, end: 20090730
  2. YAZ [Concomitant]
  3. ZYRTEC [Concomitant]
  4. KAPIDEX [Concomitant]
  5. IMITREX [Concomitant]
  6. LACTOSE INTOLERANCE SUPPLEMENTS [Concomitant]
  7. SUPER B COMPLEX VITAMINS [Concomitant]

REACTIONS (4)
  - CONSTIPATION [None]
  - DISTURBANCE IN ATTENTION [None]
  - IMPAIRED DRIVING ABILITY [None]
  - MEMORY IMPAIRMENT [None]
